FAERS Safety Report 8141209-3 (Version None)
Quarter: 2012Q1

REPORT INFORMATION
  Report Type: 
  Country: None (occurrence: None)
  Receive Date: 20120216
  Receipt Date: 20120207
  Transmission Date: 20120608
  Serious: Yes (Hospitalization, Other)
  Sender: FDA-Public Use
  Company Number: US-MYLANLABS-2012S1003284

PATIENT
  Sex: Male
  Weight: 99.79 kg

DRUGS (23)
  1. DIGOXIN [Suspect]
     Route: 048
     Dates: start: 20061219, end: 20090324
  2. SYNTHROID [Concomitant]
  3. CRESTOR [Concomitant]
  4. FUROSEMIDE [Concomitant]
  5. WARFARIN SODIUM [Concomitant]
     Route: 048
  6. VIAGRA [Concomitant]
     Route: 048
  7. COLACE [Concomitant]
  8. LISINOPRIL [Concomitant]
  9. ASPIRIN [Concomitant]
  10. MINOXIDIL [Concomitant]
  11. NAFCILLIN [Concomitant]
  12. SIMVASTATIN [Concomitant]
  13. ISOSORBIDE DINITRATE [Concomitant]
  14. MAGNESIUM HYDROXIDE TAB [Concomitant]
  15. DARVOCET-N 50 [Concomitant]
     Dosage: Q4H
     Route: 048
  16. VYTORIN [Concomitant]
     Dosage: 10MG PER 80 ONE DAILY
  17. LIPITOR [Concomitant]
     Route: 048
  18. ZETIA [Concomitant]
     Route: 048
  19. CLOPIDOGREL [Concomitant]
  20. ALTACE [Concomitant]
  21. PROTONIX [Concomitant]
  22. KLOR-CON [Concomitant]
  23. METOPROLOL TARTRATE [Concomitant]

REACTIONS (54)
  - TRICUSPID VALVE INCOMPETENCE [None]
  - VENTRICULAR TACHYCARDIA [None]
  - ANAEMIA [None]
  - CARDIAC MURMUR [None]
  - COLD SWEAT [None]
  - CORONARY ARTERY OCCLUSION [None]
  - OSTEOARTHRITIS [None]
  - PERIPHERAL COLDNESS [None]
  - VISION BLURRED [None]
  - FATIGUE [None]
  - ACUTE MYOCARDIAL INFARCTION [None]
  - CARDIAC FAILURE CONGESTIVE [None]
  - ACUTE CORONARY SYNDROME [None]
  - ASTHENIA [None]
  - EJECTION FRACTION DECREASED [None]
  - HEART RATE INCREASED [None]
  - ISCHAEMIA [None]
  - LEFT VENTRICULAR HYPERTROPHY [None]
  - VENTRICULAR HYPOKINESIA [None]
  - NAUSEA [None]
  - CHEST PAIN [None]
  - ATRIOVENTRICULAR BLOCK FIRST DEGREE [None]
  - CORONARY ARTERY DISEASE [None]
  - MITRAL VALVE INCOMPETENCE [None]
  - CATHETERISATION CARDIAC ABNORMAL [None]
  - CORONARY ARTERY BYPASS [None]
  - DILATATION VENTRICULAR [None]
  - MUSCULOSKELETAL PAIN [None]
  - SINUS BRADYCARDIA [None]
  - CARDIAC VENTRICULOGRAM LEFT [None]
  - ELECTROCARDIOGRAM T WAVE ABNORMAL [None]
  - OBESITY [None]
  - OROPHARYNGEAL PAIN [None]
  - BLOOD GLUCOSE INCREASED [None]
  - BUNDLE BRANCH BLOCK [None]
  - OEDEMA [None]
  - DIZZINESS [None]
  - HEADACHE [None]
  - TRANSIENT ISCHAEMIC ATTACK [None]
  - ELECTROCARDIOGRAM REPOLARISATION ABNORMALITY [None]
  - HYPERHIDROSIS [None]
  - HYPERTENSION [None]
  - ANXIETY [None]
  - CATARACT [None]
  - HYPERLIPIDAEMIA [None]
  - RHINORRHOEA [None]
  - ANGINA PECTORIS [None]
  - ATRIAL FIBRILLATION [None]
  - DYSARTHRIA [None]
  - DYSPNOEA [None]
  - ELECTROCARDIOGRAM ST-T CHANGE [None]
  - HEART RATE IRREGULAR [None]
  - PYREXIA [None]
  - BACK PAIN [None]
